FAERS Safety Report 7810913-6 (Version None)
Quarter: 2011Q4

REPORT INFORMATION
  Report Type: 
  Country: None (occurrence: None)
  Receive Date: 20111013
  Receipt Date: 20111010
  Transmission Date: 20120403
  Serious: No
  Sender: FDA-Public Use
  Company Number: US-PFIZER INC-2011242239

PATIENT
  Age: 18 Year
  Sex: Female
  Weight: 77.098 kg

DRUGS (3)
  1. TOPAMAX [Concomitant]
     Indication: CONVULSION
     Dosage: 75 MG, 1X/DAY
  2. CLARITIN [Concomitant]
     Indication: PHOTOSENSITIVITY ALLERGIC REACTION
     Dosage: 10 MG, AS NEEDED
  3. PRISTIQ [Suspect]
     Indication: DEPRESSION
     Dosage: 100 MG, 1X/DAY
     Dates: start: 20100101, end: 20110101

REACTIONS (1)
  - DEPRESSED MOOD [None]
